FAERS Safety Report 7574415-7 (Version None)
Quarter: 2011Q2

REPORT INFORMATION
  Report Type: 
  Country: None (occurrence: None)
  Receive Date: 20110627
  Receipt Date: 20110405
  Transmission Date: 20111010
  Serious: Yes (Other)
  Sender: FDA-Public Use
  Company Number: US-BAYER-2011-030793

PATIENT
  Age: 43 Year
  Sex: Female

DRUGS (2)
  1. LEUKINE [Suspect]
     Dosage: 750 MCG/24HR, QD
  2. LEUKINE [Suspect]
     Indication: ALVEOLAR PROTEINOSIS
     Dosage: 500 MCG/24HR, QD
     Route: 058
     Dates: start: 20091101

REACTIONS (5)
  - OEDEMA [None]
  - EOSINOPHILIA [None]
  - FLUID OVERLOAD [None]
  - NEPHROTIC SYNDROME [None]
  - HYPERTRIGLYCERIDAEMIA [None]
